FAERS Safety Report 8856504 (Version 1)
Quarter: 2012Q4

REPORT INFORMATION
  Report Type: 
  Country: US (occurrence: US)
  Receive Date: 20121023
  Receipt Date: 20121023
  Transmission Date: 20130627
  Serious: No
  Sender: FDA-Public Use
  Company Number: US-AMGEN-USASP2012047848

PATIENT
  Age: 38 Year
  Sex: Female
  Weight: 81.36 kg

DRUGS (4)
  1. ENBREL [Suspect]
     Indication: RHEUMATOID ARTHRITIS
     Dosage: 50 mg, qwk
     Route: 058
     Dates: start: 20100401, end: 20120731
  2. PREDNISONE                         /00044702/ [Concomitant]
     Indication: RHEUMATOID ARTHRITIS
     Dosage: 5 mg, qd
     Route: 048
  3. METHOTREXATE [Concomitant]
     Indication: RHEUMATOID ARTHRITIS
     Dosage: 25 mg, qwk
     Route: 048
  4. FOLIC ACID [Concomitant]
     Indication: RHEUMATOID ARTHRITIS
     Dosage: 1 mg, qd
     Route: 048

REACTIONS (1)
  - Urine odour abnormal [Recovered/Resolved]
